FAERS Safety Report 19461776 (Version 1)
Quarter: 2021Q2

REPORT INFORMATION
  Report Type: Spontaneous
  Country: US (occurrence: US)
  Receive Date: 20210625
  Receipt Date: 20210625
  Transmission Date: 20210717
  Serious: Yes (Other)
  Sender: FDA-Public Use
  Company Number: US-MYLANLABS-2021M1036779

PATIENT
  Age: 71 Year
  Sex: Male

DRUGS (7)
  1. TRIAMCINOLONE [Suspect]
     Active Substance: TRIAMCINOLONE
     Indication: GRANULOMA ANNULARE
     Dosage: UNK
     Route: 026
  2. CALCIPOTRIENE. [Suspect]
     Active Substance: CALCIPOTRIENE
     Indication: GRANULOMA ANNULARE
     Dosage: UNK
     Route: 065
  3. BETAMETHASONE. [Suspect]
     Active Substance: BETAMETHASONE
     Indication: GRANULOMA ANNULARE
     Dosage: UNK
     Route: 065
  4. MONTELUKAST [Suspect]
     Active Substance: MONTELUKAST SODIUM
     Indication: GRANULOMA ANNULARE
     Dosage: UNK
     Route: 065
  5. ASPIRIN                            /00002701/ [Suspect]
     Active Substance: ASPIRIN
     Indication: GRANULOMA ANNULARE
     Dosage: UNK
     Route: 065
  6. DAPSONE. [Suspect]
     Active Substance: DAPSONE
     Indication: GRANULOMA ANNULARE
     Dosage: UNK
     Route: 065
  7. NIACINAMIDE [Suspect]
     Active Substance: NIACINAMIDE
     Indication: GRANULOMA ANNULARE
     Dosage: UNK
     Route: 065

REACTIONS (2)
  - Off label use [Unknown]
  - Drug ineffective [Unknown]
